FAERS Safety Report 11775022 (Version 3)
Quarter: 2016Q1

REPORT INFORMATION
  Report Type: Spontaneous
  Country: JP (occurrence: JP)
  Receive Date: 20151124
  Receipt Date: 20160218
  Transmission Date: 20160525
  Serious: Yes (Other)
  Sender: FDA-Public Use
  Company Number: JP-B.I. PHARMACEUTICALS,INC./RIDGEFIELD-2015-BI-62342NB

PATIENT
  Age: 64 Year
  Sex: Female

DRUGS (1)
  1. GILOTRIF [Suspect]
     Active Substance: AFATINIB
     Indication: LUNG ADENOCARCINOMA
     Dosage: 40 MG
     Route: 048
     Dates: start: 20141120

REACTIONS (12)
  - Pancytopenia [Recovered/Resolved]
  - Decreased appetite [Unknown]
  - Neutrophil count decreased [Unknown]
  - Dermatitis acneiform [Not Recovered/Not Resolved]
  - Paronychia [Not Recovered/Not Resolved]
  - Hypokalaemia [Unknown]
  - Diarrhoea [Recovered/Resolved]
  - Rash [Unknown]
  - Pain [Unknown]
  - Depression [Unknown]
  - Stomatitis [Recovered/Resolved]
  - Vomiting psychogenic [Unknown]

NARRATIVE: CASE EVENT DATE: 20141122
